FAERS Safety Report 6558951-8 (Version None)
Quarter: 2010Q1

REPORT INFORMATION
  Report Type: 
  Country: None (occurrence: None)
  Receive Date: 20100129
  Receipt Date: 20100121
  Transmission Date: 20100710
  Serious: Yes (Other)
  Sender: FDA-Public Use
  Company Number: BR-ELI_LILLY_AND_COMPANY-BR200912001707

PATIENT
  Sex: Female
  Weight: 120 kg

DRUGS (4)
  1. HUMALOG MIX 75/25 [Suspect]
     Indication: DIABETES MELLITUS
     Dosage: 100 UG, OTHER
     Route: 065
     Dates: start: 20090101
  2. HUMULIN 70/30 [Suspect]
     Indication: DIABETES MELLITUS
     Dosage: UNK, UNKNOWN
     Route: 065
  3. LOSARTAN POTASSIUM [Concomitant]
     Indication: HYPERTENSION
     Dosage: 50 MG, EACH MORNING
     Route: 065
  4. ATENOLOL [Concomitant]
     Indication: HYPERTENSION
     Dosage: 50 MG, EACH MORNING
     Route: 065

REACTIONS (8)
  - CEREBROVASCULAR ACCIDENT [None]
  - GAIT DISTURBANCE [None]
  - HYPERGLYCAEMIA [None]
  - HYPOAESTHESIA [None]
  - HYPOGLYCAEMIA [None]
  - MOVEMENT DISORDER [None]
  - PAIN IN EXTREMITY [None]
  - TREMOR [None]
